FAERS Safety Report 9902115 (Version 2)
Quarter: 2014Q1

REPORT INFORMATION
  Report Type: Spontaneous
  Country: US (occurrence: US)
  Receive Date: 20140217
  Receipt Date: 20140217
  Transmission Date: 20141002
  Serious: Yes (Hospitalization)
  Sender: FDA-Public Use
  Company Number: US-GILEAD-2011-0046083

PATIENT
  Age: 68 Year
  Sex: Female

DRUGS (11)
  1. LETAIRIS [Suspect]
     Indication: PULMONARY HYPERTENSION
     Dosage: 5 MG, UNK
     Route: 048
     Dates: start: 20111014, end: 20111027
  2. LETAIRIS [Suspect]
     Indication: SCLERODERMA
  3. ASA [Concomitant]
  4. DIGOXIN [Concomitant]
  5. LASIX                              /00032601/ [Concomitant]
  6. KLOR-CON [Concomitant]
  7. SILDENAFIL [Concomitant]
  8. ZOCOR [Concomitant]
  9. MICARDIS [Concomitant]
  10. VITAMIN D                          /00107901/ [Concomitant]
  11. EFFEXOR [Concomitant]

REACTIONS (4)
  - Pulmonary oedema [Recovered/Resolved]
  - Cardiac failure congestive [Recovered/Resolved]
  - Oedema [Unknown]
  - Sinus disorder [Unknown]
